FAERS Safety Report 4373037-9 (Version None)
Quarter: 2004Q2

REPORT INFORMATION
  Report Type: 
  Country: None (occurrence: None)
  Receive Date: 20040603
  Receipt Date: 20040513
  Transmission Date: 20050107
  Serious: Yes (Other)
  Sender: FDA-Public Use
  Company Number: USA040567516

PATIENT
  Age: 14 Year
  Sex: Female

DRUGS (4)
  1. ZYPREXA [Suspect]
     Dosage: 2.5 MG
     Dates: start: 20040511
  2. TRILEPTAL [Concomitant]
  3. BENADRYL [Concomitant]
  4. ZOLOFT [Concomitant]

REACTIONS (1)
  - HYPOTENSION [None]
